FAERS Safety Report 5735360-2 (Version None)
Quarter: 2008Q2

REPORT INFORMATION
  Report Type: 
  Country: None (occurrence: None)
  Receive Date: 20080505
  Receipt Date: 20080325
  Transmission Date: 20081010
  Serious: Yes (Other)
  Sender: FDA-Public Use
  Company Number: PHEH2008US03123

PATIENT

DRUGS (1)
  1. EXELON [Suspect]
     Dosage: 9.5 MG, TRANSDERMAL 4.6 MG, TRANSDERMAL
     Route: 062

REACTIONS (3)
  - AGGRESSION [None]
  - DRUG INEFFECTIVE [None]
  - HALLUCINATION [None]
